FAERS Safety Report 24736954 (Version 2)
Quarter: 2024Q4

REPORT INFORMATION
  Report Type: Spontaneous
  Country: IR (occurrence: IR)
  Receive Date: 20241216
  Receipt Date: 20241218
  Transmission Date: 20250115
  Serious: Yes (Death, Other)
  Sender: Steriscience PTE
  Company Number: IR-STERISCIENCE B.V.-2024-ST-002100

PATIENT
  Age: 4 Year
  Sex: Male

DRUGS (7)
  1. MEROPENEM [Suspect]
     Active Substance: MEROPENEM
     Indication: Necrotising fasciitis
     Dosage: UNK
     Route: 065
  2. LINEZOLID [Suspect]
     Active Substance: LINEZOLID
     Indication: Necrotising fasciitis
     Dosage: UNK
     Route: 065
  3. CLINDAMYCIN [Suspect]
     Active Substance: CLINDAMYCIN
     Indication: Necrotising fasciitis
     Dosage: UNK
     Route: 065
  4. RIFAMPIN [Suspect]
     Active Substance: RIFAMPIN
     Indication: Necrotising fasciitis
     Dosage: UNK
     Route: 065
  5. ACETAMINOPHEN [Concomitant]
     Active Substance: ACETAMINOPHEN
     Indication: Varicella
     Dosage: UNK
     Route: 065
  6. ACYCLOVIR [Concomitant]
     Active Substance: ACYCLOVIR
     Indication: Varicella
     Dosage: UNK
     Route: 065
  7. DICLOFENAC [Concomitant]
     Active Substance: DICLOFENAC
     Indication: Varicella
     Dosage: UNK
     Route: 065

REACTIONS (1)
  - Drug ineffective [Fatal]
